FAERS Safety Report 16224986 (Version 1)
Quarter: 2019Q2

REPORT INFORMATION
  Report Type: Spontaneous
  Country: AU (occurrence: AU)
  Receive Date: 20190422
  Receipt Date: 20190422
  Transmission Date: 20190711
  Serious: Yes (Other)
  Sender: FDA-Public Use
  Company Number: AU-BAUSCH-BL-2019-011896

PATIENT
  Age: 85 Year
  Sex: Female

DRUGS (1)
  1. EFUDIX CREAM 5% [Suspect]
     Active Substance: FLUOROURACIL
     Indication: ACTINIC KERATOSIS
     Route: 061
     Dates: end: 20190415

REACTIONS (1)
  - Application site cellulitis [Unknown]
